FAERS Safety Report 25431499 (Version 1)
Quarter: 2025Q2

REPORT INFORMATION
  Report Type: Spontaneous
  Country: GB (occurrence: GB)
  Receive Date: 20250613
  Receipt Date: 20250613
  Transmission Date: 20250717
  Serious: Yes (Life-Threatening, Other)
  Sender: B BRAUN
  Company Number: GB-B.Braun Medical Inc.-2178444

PATIENT
  Age: 33 Year
  Sex: Male

DRUGS (1)
  1. ACETAMINOPHEN [Suspect]
     Active Substance: ACETAMINOPHEN
     Dates: start: 20250528, end: 20250528

REACTIONS (1)
  - Abdominal pain [Recovered/Resolved]
